FAERS Safety Report 24809981 (Version 1)
Quarter: 2025Q1

REPORT INFORMATION
  Report Type: Spontaneous
  Country: US (occurrence: None)
  Receive Date: 20250104
  Receipt Date: 20250104
  Transmission Date: 20250409
  Serious: No
  Sender: FDA-CTU
  Company Number: None

PATIENT
  Sex: Male
  Weight: 28.8 kg

DRUGS (4)
  1. CYCLOPHOSPHAMIDE [Suspect]
     Active Substance: CYCLOPHOSPHAMIDE
     Dates: start: 20241115, end: 20241115
  2. CYTARABINE [Suspect]
     Active Substance: CYTARABINE
     Dates: end: 20241122
  3. METHOTREXATE [Suspect]
     Active Substance: METHOTREXATE
     Dates: end: 20241115
  4. THIOGUANINE ANHYDROUS [Suspect]
     Active Substance: THIOGUANINE ANHYDROUS
     Dates: end: 20241129

REACTIONS (2)
  - Arthralgia [None]
  - Appendicitis [None]

NARRATIVE: CASE EVENT DATE: 20241216
